FAERS Safety Report 17461489 (Version 1)
Quarter: 2020Q1

REPORT INFORMATION
  Report Type: Report from Study
  Country: None (occurrence: US)
  Receive Date: 20200226
  Receipt Date: 20200226
  Transmission Date: 20200409
  Serious: Yes (Hospitalization, Other)
  Sender: FDA-Public Use
  Company Number: US-ABBVIE-19K-163-3201756-00

PATIENT
  Age: 51 Year
  Sex: Male
  Weight: 93.07 kg

DRUGS (1)
  1. HUMIRA [Suspect]
     Active Substance: ADALIMUMAB
     Indication: UVEITIS
     Route: 058
     Dates: start: 201906, end: 20191201

REACTIONS (4)
  - Pneumonia [Not Recovered/Not Resolved]
  - Weight increased [Unknown]
  - Pulmonary thrombosis [Not Recovered/Not Resolved]
  - Influenza [Not Recovered/Not Resolved]

NARRATIVE: CASE EVENT DATE: 201910
